FAERS Safety Report 6371642-1 (Version None)
Quarter: 2009Q3

REPORT INFORMATION
  Report Type: 
  Country: None (occurrence: None)
  Receive Date: 20090923
  Receipt Date: 20080513
  Transmission Date: 20100115
  Serious: Yes (Other)
  Sender: FDA-Public Use
  Company Number: US-ASTRAZENECA-2008UW01684

PATIENT
  Age: 16100 Day
  Sex: Male
  Weight: 108.9 kg

DRUGS (27)
  1. SEROQUEL [Suspect]
     Indication: BIPOLAR DISORDER
     Dosage: 25MG, 50M, 100MG, 300 MG
     Route: 048
     Dates: start: 20050910
  2. SEROQUEL [Suspect]
     Indication: DEPRESSION
     Dosage: 25MG, 50M, 100MG, 300 MG
     Route: 048
     Dates: start: 20050910
  3. SEROQUEL [Suspect]
     Indication: ANXIETY
     Dosage: 25MG, 50M, 100MG, 300 MG
     Route: 048
     Dates: start: 20050910
  4. ABILIFY [Concomitant]
     Dates: start: 20050112
  5. PROZAC [Concomitant]
     Dosage: 30-40 MG
     Dates: start: 20050910
  6. WELLBUTRIN [Concomitant]
     Dates: start: 20050615
  7. LAMICTAL [Concomitant]
     Dosage: 100 MG X 2
     Dates: start: 20050910
  8. TRAZODONE [Concomitant]
     Dates: start: 20060906
  9. TEMAZEPAM [Concomitant]
     Dates: start: 20050910, end: 20070804
  10. NAMENDA [Concomitant]
     Dates: start: 20070711
  11. CLONOPIN [Concomitant]
     Dates: start: 20070507
  12. AMBIEN [Concomitant]
     Dates: start: 20050615, end: 20050715
  13. NORVASC [Concomitant]
  14. COLACE [Concomitant]
  15. HYDROCHLOROTHIAZIDE [Concomitant]
  16. PERCOCET [Concomitant]
  17. GLUCOPHAGE [Concomitant]
  18. GLUCOTROL [Concomitant]
  19. LASIX [Concomitant]
  20. MEVACOR [Concomitant]
  21. REMERON [Concomitant]
  22. NAPROSYN [Concomitant]
  23. ORUDIS [Concomitant]
  24. VICODIN [Concomitant]
  25. FLEXERIL [Concomitant]
  26. TORADOL [Concomitant]
  27. ATIVAN [Concomitant]

REACTIONS (22)
  - ANXIETY [None]
  - ARTERIOSCLEROSIS [None]
  - BACK PAIN [None]
  - CARDIAC FAILURE CONGESTIVE [None]
  - CHANGE OF BOWEL HABIT [None]
  - CORONARY ARTERY DISEASE [None]
  - DEPRESSION [None]
  - DIABETES MELLITUS [None]
  - DIZZINESS [None]
  - DRY MOUTH [None]
  - DYSPNOEA [None]
  - GASTROOESOPHAGEAL REFLUX DISEASE [None]
  - HEADACHE [None]
  - HYPERLIPIDAEMIA [None]
  - HYPERTENSION [None]
  - MANIA [None]
  - NIGHT SWEATS [None]
  - OROPHARYNGEAL PAIN [None]
  - PAIN [None]
  - PAIN IN EXTREMITY [None]
  - SCOLIOSIS [None]
  - WEIGHT INCREASED [None]
